FAERS Safety Report 7338493-2 (Version None)
Quarter: 2011Q1

REPORT INFORMATION
  Report Type: 
  Country: None (occurrence: None)
  Receive Date: 20110308
  Receipt Date: 20110223
  Transmission Date: 20110831
  Serious: Yes (Other)
  Sender: FDA-Public Use
  Company Number: US-CELGENEUS-163-21880-11030113

PATIENT
  Sex: Male

DRUGS (6)
  1. ASA [Concomitant]
     Route: 065
  2. REGLAN [Concomitant]
     Route: 065
  3. METOPROLOL [Concomitant]
     Route: 065
  4. LISINOPRIL [Concomitant]
     Route: 065
  5. REVLIMID [Suspect]
     Dosage: 15 MILLIGRAM
     Route: 048
     Dates: start: 20101013
  6. KLOR-CON [Concomitant]
     Route: 065

REACTIONS (2)
  - COLON CANCER [None]
  - DIARRHOEA [None]
